FAERS Safety Report 20818769 (Version 1)
Quarter: 2022Q2

REPORT INFORMATION
  Report Type: Report from Study
  Country: US (occurrence: US)
  Receive Date: 20220512
  Receipt Date: 20220512
  Transmission Date: 20220720
  Serious: No
  Sender: FDA-Public Use
  Company Number: US-BIOVITRUM-2022US02046

PATIENT
  Age: 17 Year
  Sex: Male

DRUGS (1)
  1. KINERET [Suspect]
     Active Substance: ANAKINRA
     Indication: Heart disease congenital
     Route: 058
     Dates: start: 10190326

REACTIONS (5)
  - Ocular hyperaemia [Unknown]
  - Headache [Unknown]
  - Onychomycosis [Unknown]
  - Middle insomnia [Unknown]
  - Off label use [Not Recovered/Not Resolved]

NARRATIVE: CASE EVENT DATE: 20190326
